FAERS Safety Report 6475007-3 (Version None)
Quarter: 2009Q4

REPORT INFORMATION
  Report Type: 
  Country: None (occurrence: None)
  Receive Date: 20091204
  Receipt Date: 20090508
  Transmission Date: 20100525
  Serious: Yes (Other)
  Sender: FDA-Public Use
  Company Number: DE-ELI_LILLY_AND_COMPANY-DE200904000916

PATIENT
  Age: 56 Year
  Sex: Male

DRUGS (9)
  1. BYETTA [Suspect]
     Indication: TYPE 2 DIABETES MELLITUS
     Dosage: 5 UG, UNK
     Dates: start: 20080508, end: 20080609
  2. BYETTA [Suspect]
     Dosage: 10 UG, UNK
     Dates: start: 20080610
  3. ASPIRIN [Concomitant]
  4. CLOPIDOGREL [Concomitant]
  5. CARVEDILOL [Concomitant]
  6. BLOPRESS [Concomitant]
  7. SIMVASTATIN [Concomitant]
  8. LYRICA [Concomitant]
  9. METFORMIN HCL [Concomitant]

REACTIONS (1)
  - PANCREATITIS [None]
